FAERS Safety Report 6819628-4 (Version None)
Quarter: 2010Q3

REPORT INFORMATION
  Report Type: 
  Country: None (occurrence: None)
  Receive Date: 20100701
  Receipt Date: 20100323
  Transmission Date: 20110219
  Serious: No
  Sender: FDA-Public Use
  Company Number: US-TEVA-228848USA

PATIENT
  Sex: Male
  Weight: 93.07 kg

DRUGS (4)
  1. AZILECT [Suspect]
     Indication: PARKINSON'S DISEASE
     Route: 048
     Dates: start: 20100208
  2. AZILECT [Concomitant]
  3. CARBIDOPA [Suspect]
     Indication: PARKINSON'S DISEASE
     Dates: start: 20100208
  4. LEVOTHYROXINE SODIUM [Concomitant]
     Indication: THYROID DISORDER

REACTIONS (1)
  - SOMNOLENCE [None]
